FAERS Safety Report 6570450-6 (Version None)
Quarter: 2010Q1

REPORT INFORMATION
  Report Type: 
  Country: None (occurrence: None)
  Receive Date: 20100204
  Receipt Date: 20090805
  Transmission Date: 20100710
  Serious: No
  Sender: FDA-Public Use
  Company Number: A0792043A

PATIENT
  Age: 62 Year
  Sex: Female

DRUGS (9)
  1. ARIXTRA [Suspect]
     Indication: DEEP VEIN THROMBOSIS
     Dosage: 7.5MG PER DAY
     Route: 058
     Dates: start: 20090101
  2. BLOOD PRESSURE MEDICATION [Concomitant]
  3. WATER PILL [Concomitant]
  4. PAIN MEDICATION [Concomitant]
  5. ACTIQ [Concomitant]
  6. UNKNOWN MEDICATION [Concomitant]
  7. UNSPECIFIED INHALER [Concomitant]
  8. CLIMARA [Concomitant]
  9. ANTIDEPRESSANT [Concomitant]

REACTIONS (5)
  - CONTUSION [None]
  - LOCAL SWELLING [None]
  - MEDICAL DEVICE COMPLICATION [None]
  - PAIN [None]
  - PRODUCT QUALITY ISSUE [None]
